FAERS Safety Report 8813722 (Version 2)
Quarter: 2012Q4

REPORT INFORMATION
  Report Type: 
  Country: US (occurrence: US)
  Receive Date: 20120928
  Receipt Date: 20121029
  Transmission Date: 20130627
  Serious: Yes (Other)
  Sender: FDA-Public Use
  Company Number: US-ROCHE-1065317

PATIENT
  Age: 19 Year
  Sex: Male
  Weight: 77.18 kg

DRUGS (1)
  1. ACCUTANE [Suspect]
     Indication: ACNE
     Route: 048
     Dates: start: 200209, end: 200301

REACTIONS (14)
  - Crohn^s disease [Unknown]
  - Gastritis [Unknown]
  - Fatigue [Unknown]
  - Sleep disorder [Unknown]
  - Anxiety [Unknown]
  - Emotional distress [Unknown]
  - Inflammatory bowel disease [Unknown]
  - Lip dry [Unknown]
  - Chapped lips [Unknown]
  - Nasal dryness [Unknown]
  - Epistaxis [Unknown]
  - Dry eye [Unknown]
  - Headache [Unknown]
  - Dry skin [Unknown]
